FAERS Safety Report 7061521-9 (Version None)
Quarter: 2010Q4

REPORT INFORMATION
  Report Type: 
  Country: None (occurrence: None)
  Receive Date: 20101026
  Receipt Date: 20101020
  Transmission Date: 20110411
  Serious: Yes (Other)
  Sender: FDA-Public Use
  Company Number: SE-PFIZER INC-2010118466

PATIENT
  Sex: Female

DRUGS (1)
  1. DALACIN [Suspect]
     Indication: DERMATITIS
     Route: 065

REACTIONS (2)
  - PAIN IN JAW [None]
  - TRISMUS [None]
